FAERS Safety Report 25802002 (Version 1)
Quarter: 2025Q3

REPORT INFORMATION
  Report Type: Spontaneous
  Country: US (occurrence: None)
  Receive Date: 20250912
  Receipt Date: 20250912
  Transmission Date: 20251021
  Serious: Yes (Other)
  Sender: FDA-CTU
  Company Number: None

PATIENT
  Age: 59 Year
  Sex: Female

DRUGS (1)
  1. BIOTIN\MINOXIDIL [Suspect]
     Active Substance: BIOTIN\MINOXIDIL
     Indication: Alopecia
     Dosage: FREQUENCY : DAILY;?
     Route: 048
     Dates: start: 20250705, end: 20250723

REACTIONS (1)
  - Palpitations [None]

NARRATIVE: CASE EVENT DATE: 20250723
